FAERS Safety Report 21475435 (Version 1)
Quarter: 2022Q4

REPORT INFORMATION
  Report Type: Spontaneous
  Country: US (occurrence: US)
  Receive Date: 20221019
  Receipt Date: 20221019
  Transmission Date: 20230112
  Serious: No
  Sender: FDA-Public Use
  Company Number: US-ALLERGAN-2200957US

PATIENT
  Sex: Female

DRUGS (3)
  1. LINZESS [Suspect]
     Active Substance: LINACLOTIDE
     Indication: Constipation
     Dosage: 72 ?G, QD
     Route: 048
     Dates: start: 202112, end: 202112
  2. OXYBUTYNIN [Concomitant]
     Active Substance: OXYBUTYNIN
  3. VITAMIN D [Concomitant]
     Active Substance: VITAMIN D NOS
     Dosage: WEEKLY

REACTIONS (2)
  - Drug ineffective [Unknown]
  - Product label issue [Unknown]
